FAERS Safety Report 6190274-1 (Version None)
Quarter: 2009Q2

REPORT INFORMATION
  Report Type: 
  Country: None (occurrence: None)
  Receive Date: 20090514
  Receipt Date: 20090504
  Transmission Date: 20091009
  Serious: Yes (Death, Other)
  Sender: FDA-Public Use
  Company Number: US-BAYER-200920331NA

PATIENT
  Sex: Male

DRUGS (4)
  1. MAGNEVIST [Suspect]
     Indication: NUCLEAR MAGNETIC RESONANCE IMAGING
     Dates: start: 20030116, end: 20030116
  2. MAGNEVIST [Suspect]
     Dates: start: 20060518, end: 20060518
  3. MAGNEVIST [Suspect]
     Dates: start: 20060519, end: 20060519
  4. MAGNEVIST [Suspect]
     Dates: start: 20060612, end: 20060612

REACTIONS (4)
  - NEPHROGENIC SYSTEMIC FIBROSIS [None]
  - PAIN [None]
  - PULMONARY FIBROSIS [None]
  - SKIN FIBROSIS [None]
